FAERS Safety Report 8192017-9 (Version None)
Quarter: 2012Q1

REPORT INFORMATION
  Report Type: 
  Country: None (occurrence: None)
  Receive Date: 20120307
  Receipt Date: 20120305
  Transmission Date: 20120608
  Serious: Yes (Death, Hospitalization)
  Sender: FDA-Public Use
  Company Number: PHHY2012EC019497

PATIENT
  Age: 97 Year
  Sex: Male

DRUGS (1)
  1. DIOVAN [Suspect]
     Indication: HYPERTENSION
     Dosage: 80 MG, DAILY
     Route: 048

REACTIONS (3)
  - TACHYCARDIA [None]
  - GENERAL PHYSICAL HEALTH DETERIORATION [None]
  - CARDIO-RESPIRATORY ARREST [None]
